FAERS Safety Report 17509448 (Version 2)
Quarter: 2020Q2

REPORT INFORMATION
  Report Type: Spontaneous
  Country: US (occurrence: US)
  Receive Date: 20200306
  Receipt Date: 20200612
  Transmission Date: 20200713
  Serious: No
  Sender: FDA-Public Use
  Company Number: US-SA-2019SA343025

PATIENT

DRUGS (6)
  1. DUPIXENT [Suspect]
     Active Substance: DUPILUMAB
     Indication: ECZEMA
     Dosage: 200 MG, Q15D
     Route: 058
     Dates: start: 20191015
  2. BETAMETHASONE. [Concomitant]
     Active Substance: BETAMETHASONE
  3. KETOCONAZOLE. [Concomitant]
     Active Substance: KETOCONAZOLE
  4. DUPIXENT [Suspect]
     Active Substance: DUPILUMAB
     Dosage: 300 MG, QOW
     Route: 058
  5. FLUOCINONIDE. [Concomitant]
     Active Substance: FLUOCINONIDE
  6. LO/OVRAL [ETHINYLESTRADIOL;NORGESTREL] [Concomitant]

REACTIONS (2)
  - Hypoaesthesia [Unknown]
  - Drug resistance [Unknown]

NARRATIVE: CASE EVENT DATE: 20200226
